FAERS Safety Report 13136207 (Version 2)
Quarter: 2017Q4

REPORT INFORMATION
  Report Type: Spontaneous
  Country: US (occurrence: US)
  Receive Date: 20170121
  Receipt Date: 20171206
  Transmission Date: 20180320
  Serious: No
  Sender: FDA-Public Use
  Company Number: US-TEVA-726706ACC

PATIENT
  Age: 34 Year
  Sex: Male

DRUGS (10)
  1. COPAXONE [Suspect]
     Active Substance: GLATIRAMER ACETATE
     Indication: MULTIPLE SCLEROSIS
     Dosage: LIQUID
     Route: 058
     Dates: start: 20160112
  2. MULTI-VIT [Concomitant]
     Active Substance: VITAMINS
  3. VENTOLIN [Concomitant]
     Active Substance: ALBUTEROL SULFATE
  4. AMPYRA [Concomitant]
     Active Substance: DALFAMPRIDINE
  5. LORATADINE. [Concomitant]
     Active Substance: LORATADINE
  6. ALBUTEROL NEB [Concomitant]
  7. HYDROXYZINE [Concomitant]
     Active Substance: HYDROXYZINE HYDROCHLORIDE
  8. FLONASE [Concomitant]
     Active Substance: FLUTICASONE PROPIONATE
  9. DIVALPROEX [Concomitant]
     Active Substance: DIVALPROEX SODIUM
  10. QVAR [Concomitant]
     Active Substance: BECLOMETHASONE DIPROPIONATE

REACTIONS (3)
  - Fatigue [Not Recovered/Not Resolved]
  - Injection site reaction [Unknown]
  - Dizziness [Unknown]

NARRATIVE: CASE EVENT DATE: 201610
